FAERS Safety Report 8805317 (Version 1)
Quarter: 2012Q4

REPORT INFORMATION
  Report Type: 
  Country: UZ (occurrence: UZ)
  Receive Date: 20120924
  Receipt Date: 20120924
  Transmission Date: 20130627
  Serious: Yes (Death)
  Sender: FDA-Public Use
  Company Number: PHHY2009UZ071155

PATIENT
  Sex: Female

DRUGS (1)
  1. GLIVEC [Suspect]
     Dosage: UNK
     Dates: start: 20070328

REACTIONS (5)
  - Hepatitis toxic [Fatal]
  - Pancytopenia [Fatal]
  - Pneumonia [Fatal]
  - Cardiac failure [Fatal]
  - Vomiting [Unknown]
